FAERS Safety Report 12712879 (Version 1)
Quarter: 2016Q3

REPORT INFORMATION
  Report Type: Spontaneous
  Country: DE (occurrence: DE)
  Receive Date: 20160902
  Receipt Date: 20160902
  Transmission Date: 20161109
  Serious: Yes (Death, Hospitalization)
  Sender: FDA-Public Use
  Company Number: DE-JNJFOC-20160808678

PATIENT
  Age: 90 Year
  Sex: Female
  Weight: 60 kg

DRUGS (12)
  1. OMEP [Concomitant]
     Active Substance: OMEPRAZOLE
     Route: 065
  2. XARELTO [Suspect]
     Active Substance: RIVAROXABAN
     Indication: EMBOLISM VENOUS
     Dosage: CUMULATIVE DOSE TO FIRST REACTION: 18940 MILLIGRAM
     Route: 048
     Dates: start: 20131112, end: 20160615
  3. XARELTO [Suspect]
     Active Substance: RIVAROXABAN
     Indication: ATRIAL FIBRILLATION
     Dosage: CUMULATIVE DOSE TO FIRST REACTION: 18940 MILLIGRAM
     Route: 048
     Dates: start: 20131112, end: 20160615
  4. XARELTO [Suspect]
     Active Substance: RIVAROXABAN
     Indication: CEREBROVASCULAR ACCIDENT PROPHYLAXIS
     Dosage: CUMULATIVE DOSE TO FIRST REACTION: 18940 MILLIGRAM
     Route: 048
     Dates: start: 20131112, end: 20160615
  5. ISMN [Concomitant]
     Active Substance: ISOSORBIDE MONONITRATE
     Route: 065
  6. CLAVERSAL [Concomitant]
     Active Substance: MESALAMINE
     Route: 065
  7. BISOPROLOL [Concomitant]
     Active Substance: BISOPROLOL
     Route: 065
  8. EUTHYROX [Concomitant]
     Active Substance: LEVOTHYROXINE SODIUM
     Route: 065
  9. LEVETIRACETAM. [Concomitant]
     Active Substance: LEVETIRACETAM
     Route: 065
  10. XARELTO [Suspect]
     Active Substance: RIVAROXABAN
     Indication: DEEP VEIN THROMBOSIS
     Dosage: CUMULATIVE DOSE TO FIRST REACTION: 18940 MILLIGRAM
     Route: 048
     Dates: start: 20131112, end: 20160615
  11. TORASEMID [Concomitant]
     Active Substance: TORSEMIDE
     Route: 065
  12. ALDACTONE [Concomitant]
     Active Substance: SPIRONOLACTONE
     Route: 065

REACTIONS (3)
  - Cerebral haemorrhage [Fatal]
  - Subdural haematoma [Fatal]
  - Fall [Unknown]

NARRATIVE: CASE EVENT DATE: 20160615
